FAERS Safety Report 23052176 (Version 2)
Quarter: 2023Q4

REPORT INFORMATION
  Report Type: Report from Study
  Country: GR (occurrence: GR)
  Receive Date: 20231010
  Receipt Date: 20231025
  Transmission Date: 20240109
  Serious: Yes (Hospitalization)
  Sender: FDA-Public Use
  Company Number: GR-ABBVIE-5439704

PATIENT
  Age: 53 Year
  Sex: Male

DRUGS (10)
  1. CARBIDOPA\LEVODOPA [Suspect]
     Active Substance: CARBIDOPA\LEVODOPA
     Indication: Parkinson^s disease
     Dosage: MORNING DOSE: 5.0ML; CONTINUOUS RATE: 4.5ML/H; EXTRA DOSE: 2.0ML(24-HOUR ADMINISTRATION)
     Route: 050
     Dates: start: 20211012
  2. CARBIDOPA\LEVODOPA [Suspect]
     Active Substance: CARBIDOPA\LEVODOPA
     Dosage: MORNING DOSE: 5.0ML; CONTINUOUS RATE: 4.5ML/H; EXTRA DOSE: 2.0ML(24-HOUR ADMINISTRATION)
     Route: 050
  3. Eselan [Concomitant]
     Indication: Product used for unknown indication
  4. OMEPRAZOLE [Concomitant]
     Active Substance: OMEPRAZOLE
     Indication: Product used for unknown indication
     Route: 065
  5. FUROSEMIDE [Concomitant]
     Active Substance: FUROSEMIDE
     Indication: Product used for unknown indication
     Route: 065
  6. PRIMPERAN [Concomitant]
     Active Substance: METOCLOPRAMIDE HYDROCHLORIDE
     Indication: Product used for unknown indication
  7. CARVEDILOL/MYLAN [Concomitant]
     Indication: Product used for unknown indication
     Dosage: UNIT DOSE: 6.25MG
     Route: 048
  8. Hydroflux [Concomitant]
     Indication: Product used for unknown indication
  9. Apotel max [Concomitant]
     Indication: Product used for unknown indication
     Route: 065
  10. BENSERAZIDE HYDROCHLORIDE\LEVODOPA [Concomitant]
     Active Substance: BENSERAZIDE HYDROCHLORIDE\LEVODOPA
     Indication: Product used for unknown indication
     Dosage: UNIT DOSE: (100 +25)MG OF FORM STRENGTH (200+50)MG
     Route: 048

REACTIONS (6)
  - Malaise [Not Recovered/Not Resolved]
  - Respiratory tract infection [Recovered/Resolved]
  - Fatigue [Not Recovered/Not Resolved]
  - Unevaluable event [Recovered/Resolved]
  - Unintentional medical device removal [Unknown]
  - Somnolence [Unknown]

NARRATIVE: CASE EVENT DATE: 20230903
